FAERS Safety Report 7682865-3 (Version None)
Quarter: 2011Q3

REPORT INFORMATION
  Report Type: 
  Country: None (occurrence: None)
  Receive Date: 20110812
  Receipt Date: 20110812
  Transmission Date: 20111222
  Serious: Yes (Hospitalization)
  Sender: FDA-Public Use
  Company Number: None

PATIENT
  Age: 93 Year
  Sex: Male
  Weight: 77.1 kg

DRUGS (2)
  1. HEPARIN SODIUM 1,000 UNITS IN SODIUM CHLORIDE 0.9% [Suspect]
     Indication: DEVICE OCCLUSION
     Dosage: 30 UNITS BID IV
     Route: 042
     Dates: start: 20110519, end: 20110601
  2. HEPARIN SODIUM 1,000 UNITS IN SODIUM CHLORIDE 0.9% [Suspect]
     Indication: PROPHYLAXIS
     Dosage: 30 UNITS BID IV
     Route: 042
     Dates: start: 20110519, end: 20110601

REACTIONS (1)
  - THROMBOCYTOPENIA [None]
